FAERS Safety Report 5947312-8 (Version None)
Quarter: 2008Q4

REPORT INFORMATION
  Report Type: 
  Country: None (occurrence: None)
  Receive Date: 20081110
  Receipt Date: 20081029
  Transmission Date: 20090506
  Serious: Yes (Hospitalization)
  Sender: FDA-Public Use
  Company Number: FR-PFIZER INC-2008086830

PATIENT
  Sex: Female

DRUGS (2)
  1. SALAZOPYRINE EC [Suspect]
     Route: 048
     Dates: start: 20080714, end: 20080820
  2. CALCIUM CARBONATE/COLECALCIFEROL [Concomitant]

REACTIONS (1)
  - DRUG RASH WITH EOSINOPHILIA AND SYSTEMIC SYMPTOMS [None]
